FAERS Safety Report 4346032-3 (Version None)
Quarter: 2004Q2

REPORT INFORMATION
  Report Type: 
  Country: None (occurrence: None)
  Receive Date: 20040426
  Receipt Date: 20030924
  Transmission Date: 20050107
  Serious: No
  Sender: FDA-Public Use
  Company Number: US-GLAXOSMITHKLINE-A0427373A

PATIENT
  Age: 61 Year
  Sex: Female

DRUGS (8)
  1. ZOFRAN [Suspect]
     Indication: PROPHYLAXIS OF NAUSEA AND VOMITING
     Dosage: 4MG FOUR TIMES PER DAY
     Route: 048
     Dates: start: 20010101
  2. MORPHINE [Concomitant]
  3. METHADONE HCL [Concomitant]
  4. KEPPRA [Concomitant]
  5. DESIPRAMINE HCL [Concomitant]
  6. PREVACID [Concomitant]
  7. FLUOXETINE [Concomitant]
  8. ZELNORM [Concomitant]

REACTIONS (2)
  - DRUG INEFFECTIVE [None]
  - PHARMACEUTICAL PRODUCT COMPLAINT [None]
